FAERS Safety Report 24287841 (Version 1)
Quarter: 2024Q3

REPORT INFORMATION
  Report Type: Report from Study
  Country: NL (occurrence: NL)
  Receive Date: 20240905
  Receipt Date: 20240905
  Transmission Date: 20241016
  Serious: Yes (Hospitalization, Other)
  Sender: VERITY PHARMACEUTICALS
  Company Number: NL-VER-202400055

PATIENT
  Age: 73 Year
  Sex: Male

DRUGS (2)
  1. TRIPTORELIN PAMOATE [Suspect]
     Active Substance: TRIPTORELIN PAMOATE
     Indication: Prostate cancer
     Dosage: (22.5 MILLIGRAM(S), IN 6 MONTH)
     Route: 030
     Dates: start: 20240220
  2. TRIPTORELIN PAMOATE [Suspect]
     Active Substance: TRIPTORELIN PAMOATE
     Indication: Prostate cancer
     Dosage: (22.5 MILLIGRAM(S), IN 6 MONTH)
     Route: 030
     Dates: start: 20240821

REACTIONS (2)
  - Fall [Unknown]
  - Hip fracture [Unknown]

NARRATIVE: CASE EVENT DATE: 20240821
